FAERS Safety Report 7364683 (Version 2)
Quarter: 2013Q3

REPORT INFORMATION
  Report Type: Spontaneous
  Country: NO (occurrence: NO)
  Receive Date: 20100423
  Receipt Date: 20130828
  Transmission Date: 20140515
  Serious: Yes (Hospitalization)
  Sender: FDA-Public Use
  Company Number: NO-TEVA-231694ISR

PATIENT
  Age: 35 Year
  Sex: Female

DRUGS (5)
  1. PRAMIPEXOLE [Suspect]
     Indication: MIGRAINE PROPHYLAXIS
  2. CANDESARTAN CILEXETIL [Suspect]
     Indication: MIGRAINE PROPHYLAXIS
     Dosage: 16 MILLIGRAM DAILY;
     Route: 048
  3. AMITRIPTYLINE [Suspect]
     Indication: MIGRAINE PROPHYLAXIS
     Dosage: 25 MILLIGRAM DAILY;
  4. METOCLOPRAMIDE [Concomitant]
     Indication: MIGRAINE
  5. ZOLMITRIPTAN [Concomitant]
     Indication: MIGRAINE

REACTIONS (1)
  - Oligohydramnios [Unknown]
